FAERS Safety Report 6699024-3 (Version None)
Quarter: 2010Q2

REPORT INFORMATION
  Report Type: 
  Country: None (occurrence: None)
  Receive Date: 20100427
  Receipt Date: 20100420
  Transmission Date: 20101027
  Serious: Yes (Hospitalization)
  Sender: FDA-Public Use
  Company Number: MX-BRISTOL-MYERS SQUIBB COMPANY-14828339

PATIENT
  Age: 31 Year
  Sex: Male

DRUGS (3)
  1. ARIPIPRAZOLE [Suspect]
     Indication: SCHIZOPHRENIA
     Route: 048
     Dates: start: 20090923, end: 20091017
  2. BIPERIDEN HYDROCHLORIDE TAB [Concomitant]
     Indication: AKATHISIA
     Dosage: ALSO GIVEN ON 30OCT09, STOPPED ON 04FEB2009, RESTARTED ON 29SEP09
     Route: 048
     Dates: start: 20020101, end: 20090204
  3. LORAZEPAM [Concomitant]
     Dates: start: 20090710

REACTIONS (1)
  - SCHIZOPHRENIA [None]
